FAERS Safety Report 6983656-9 (Version None)
Quarter: 2010Q3

REPORT INFORMATION
  Report Type: 
  Country: None (occurrence: None)
  Receive Date: 20100914
  Receipt Date: 20081113
  Transmission Date: 20110219
  Serious: No
  Sender: FDA-Public Use
  Company Number: US-WYE-H06851008

PATIENT
  Age: 71 Year
  Sex: Female

DRUGS (5)
  1. ADVIL LIQUI-GELS [Suspect]
     Indication: ANALGESIC THERAPY
     Route: 048
  2. DOCUSATE SODIUM [Concomitant]
  3. CALCIUM [Concomitant]
  4. ACETYLSALICYLIC ACID [Concomitant]
  5. FISH OIL [Concomitant]

REACTIONS (2)
  - EYE PAIN [None]
  - FEELING JITTERY [None]
